FAERS Safety Report 23142019 (Version 1)
Quarter: 2023Q4

REPORT INFORMATION
  Report Type: Spontaneous
  Country: US (occurrence: US)
  Receive Date: 20231103
  Receipt Date: 20231103
  Transmission Date: 20240110
  Serious: No
  Sender: FDA-Public Use
  Company Number: US-MYOVANT SCIENCES GMBH-2023MYSCI0800630

PATIENT
  Age: 79 Year
  Sex: Male

DRUGS (14)
  1. ORGOVYX [Suspect]
     Active Substance: RELUGOLIX
     Indication: Prostate cancer
     Dosage: 360 MILLIGRAM, ONE TIME DOSE
     Route: 048
     Dates: start: 20221101, end: 20221101
  2. ORGOVYX [Suspect]
     Active Substance: RELUGOLIX
     Dosage: 120 MILLIGRAM, QD
     Route: 048
     Dates: start: 20221102
  3. LEVETIRACETAM [Concomitant]
     Active Substance: LEVETIRACETAM
     Indication: Seizure
     Dosage: 1500 MILLIGRAM, BID
     Route: 048
  4. DILANTIN                           /00017401/ [Concomitant]
     Indication: Product used for unknown indication
     Dosage: 200 MILLIGRAM, BID
     Route: 048
  5. METOPROLOL TARTRATE [Concomitant]
     Active Substance: METOPROLOL TARTRATE
     Indication: Blood pressure abnormal
     Dosage: 25 MILLIGRAM, BID
     Route: 048
  6. CETIRIZINE HCL [Concomitant]
     Active Substance: CETIRIZINE HYDROCHLORIDE
     Indication: Hypersensitivity
     Dosage: 10 MILLIGRAM, QD
     Route: 048
  7. CETIRIZINE HCL [Concomitant]
     Active Substance: CETIRIZINE HYDROCHLORIDE
     Indication: Rhinorrhoea
  8. SIMVASTATIN [Concomitant]
     Active Substance: SIMVASTATIN
     Indication: Blood cholesterol abnormal
     Dosage: 20 MILLIGRAM, QD
     Route: 048
  9. DOXAZOSIN [Concomitant]
     Active Substance: DOXAZOSIN MESYLATE
     Indication: Prostatic disorder
     Dosage: 5 MILLIGRAM, QD
     Route: 048
  10. CALCIUM WITH VITAMIN D3            /00944201/ [Concomitant]
     Indication: Supplementation therapy
     Dosage: 600 MILLIGRAM, BID
     Route: 048
  11. MAGNESIUM CITRATE [Concomitant]
     Active Substance: MAGNESIUM CITRATE
     Indication: Supplementation therapy
     Dosage: 2 DOSAGE FORM, QD
     Route: 048
  12. VITAMINS [Concomitant]
     Active Substance: VITAMINS
     Indication: Supplementation therapy
     Dosage: UNK, QD
     Route: 048
  13. ZINC [Concomitant]
     Active Substance: PYRITHIONE ZINC\ZINC\ZINC CHLORIDE
     Indication: Nasopharyngitis
     Dosage: 50 MILLIGRAM, QD
     Route: 048
  14. ZINC [Concomitant]
     Active Substance: PYRITHIONE ZINC\ZINC\ZINC CHLORIDE
     Indication: Immune system disorder

REACTIONS (2)
  - Blood pressure diastolic increased [Unknown]
  - Therapy interrupted [Recovered/Resolved]

NARRATIVE: CASE EVENT DATE: 20230313
